FAERS Safety Report 4712567-4 (Version None)
Quarter: 2005Q2

REPORT INFORMATION
  Report Type: 
  Country: None (occurrence: None)
  Receive Date: 20050629
  Receipt Date: 20050519
  Transmission Date: 20051028
  Serious: No
  Sender: FDA-Public Use
  Company Number: 05P-163-0300900-00

PATIENT
  Age: 60 Year
  Sex: Female
  Weight: 65.7716 kg

DRUGS (8)
  1. HUMIRA [Suspect]
     Indication: RHEUMATOID ARTHRITIS
     Dosage: 40 MG, 1 IN 2 WK, SUBCUTANEOUS
     Route: 058
     Dates: start: 20050201
  2. HYDROCODONE BITARTRATE [Concomitant]
  3. ALENDRONATE SODIUM [Concomitant]
  4. PANTOPRAZOLE [Concomitant]
  5. LEVOTHYROXINE [Concomitant]
  6. METOPROLOL TARTRATE [Concomitant]
  7. SULFAZINE [Concomitant]
  8. TREXALL [Concomitant]

REACTIONS (3)
  - FALL [None]
  - IMPAIRED HEALING [None]
  - UPPER LIMB FRACTURE [None]
